FAERS Safety Report 15058575 (Version 2)
Quarter: 2018Q2

REPORT INFORMATION
  Report Type: Spontaneous
  Country: PT (occurrence: PT)
  Receive Date: 20180625
  Receipt Date: 20180626
  Transmission Date: 20180711
  Serious: Yes (Life-Threatening, Other)
  Sender: FDA-Public Use
  Company Number: PT-009507513-1806PRT008997

PATIENT
  Age: 38 Year
  Sex: Female
  Weight: 65 kg

DRUGS (5)
  1. HUMALOG [Concomitant]
     Active Substance: INSULIN LISPRO
  2. LANTUS [Concomitant]
     Active Substance: INSULIN GLARGINE
     Dosage: AT NIGHT
  3. EFEXOR [Concomitant]
     Active Substance: VENLAFAXINE HYDROCHLORIDE
     Dosage: IN THE MORNING
  4. LEXOTAN [Concomitant]
     Active Substance: BROMAZEPAM
     Dosage: MORNING + AFTERNOON + NIGHT
  5. REMERON SOLTAB [Suspect]
     Active Substance: MIRTAZAPINE
     Indication: DEPRESSION
     Dosage: 1 TABLET DISSOLVED IN THE TONGUE AT NIGHT
     Route: 048
     Dates: start: 20180419

REACTIONS (3)
  - Glossodynia [Not Recovered/Not Resolved]
  - Plicated tongue [Not Recovered/Not Resolved]
  - Trichoglossia [Not Recovered/Not Resolved]

NARRATIVE: CASE EVENT DATE: 20180601
